FAERS Safety Report 7002109-5 (Version None)
Quarter: 2010Q3

REPORT INFORMATION
  Report Type: 
  Country: None (occurrence: None)
  Receive Date: 20100920
  Receipt Date: 20071025
  Transmission Date: 20110219
  Serious: No
  Sender: FDA-Public Use
  Company Number: US-ASTRAZENECA-2006UW08769

PATIENT
  Age: 44 Year
  Sex: Female
  Weight: 75.7 kg

DRUGS (27)
  1. SEROQUEL [Suspect]
     Indication: ANXIETY
     Route: 048
     Dates: start: 20000101
  2. SEROQUEL [Suspect]
     Indication: DEPRESSION
     Route: 048
     Dates: start: 20000101
  3. SEROQUEL [Suspect]
     Indication: BIPOLAR DISORDER
     Route: 048
     Dates: start: 20000101
  4. SEROQUEL [Suspect]
     Indication: MOOD SWINGS
     Route: 048
     Dates: start: 20000101
  5. SEROQUEL [Suspect]
     Route: 048
     Dates: start: 20000101
  6. SEROQUEL [Suspect]
     Route: 048
     Dates: start: 20000101
  7. SEROQUEL [Suspect]
     Route: 048
     Dates: start: 20000101
  8. SEROQUEL [Suspect]
     Route: 048
     Dates: start: 20000101
  9. SEROQUEL [Suspect]
     Dosage: 100-800 MG
     Route: 048
     Dates: start: 20010628, end: 20010728
  10. SEROQUEL [Suspect]
     Dosage: 100-800 MG
     Route: 048
     Dates: start: 20010628, end: 20010728
  11. SEROQUEL [Suspect]
     Dosage: 100-800 MG
     Route: 048
     Dates: start: 20010628, end: 20010728
  12. SEROQUEL [Suspect]
     Dosage: 100-800 MG
     Route: 048
     Dates: start: 20010628, end: 20010728
  13. SEROQUEL [Suspect]
     Route: 048
     Dates: start: 20020101
  14. SEROQUEL [Suspect]
     Route: 048
     Dates: start: 20020101
  15. SEROQUEL [Suspect]
     Route: 048
     Dates: start: 20020101
  16. SEROQUEL [Suspect]
     Route: 048
     Dates: start: 20020101
  17. THORAZINE [Concomitant]
     Dates: start: 20030101, end: 20040101
  18. RISPERIDONE [Concomitant]
     Dates: start: 20000101, end: 20050401
  19. RISPERIDONE [Concomitant]
     Dates: start: 20070501
  20. KLONOPIN [Concomitant]
     Indication: PANIC DISORDER
     Dosage: 0.5-600 MG
     Route: 048
     Dates: start: 20020102
  21. KLONOPIN [Concomitant]
     Indication: ANXIETY
     Dosage: 0.5-600 MG
     Route: 048
     Dates: start: 20020102
  22. TEGRETOL [Concomitant]
     Dates: start: 19980317, end: 20010701
  23. TRAZODONE HCL [Concomitant]
     Dosage: 100-200 MG EVERY NIGHT
     Dates: start: 19980317
  24. GLIPIZIDE [Concomitant]
     Route: 048
     Dates: start: 20050307
  25. PRILOSEC [Concomitant]
     Route: 048
     Dates: start: 20050307
  26. SPIRONOLACTONE [Concomitant]
     Dosage: 25-50 MG
     Dates: start: 20020102
  27. LASIX [Concomitant]
     Route: 048
     Dates: start: 20050307

REACTIONS (4)
  - DIABETES MELLITUS [None]
  - LIVER DISORDER [None]
  - ROAD TRAFFIC ACCIDENT [None]
  - TYPE 2 DIABETES MELLITUS [None]
